FAERS Safety Report 5078351-X (Version None)
Quarter: 2006Q3

REPORT INFORMATION
  Report Type: 
  Country: None (occurrence: None)
  Receive Date: 20060811
  Receipt Date: 20060731
  Transmission Date: 20061208
  Serious: Yes (Other)
  Sender: FDA-Public Use
  Company Number: S2006US13487

PATIENT
  Sex: Female

DRUGS (4)
  1. COREG [Suspect]
     Indication: DRUG USE FOR UNKNOWN INDICATION
  2. MICARDIS [Suspect]
  3. NORVASC [Suspect]
  4. WATER PILL [Suspect]

REACTIONS (1)
  - DIABETES MELLITUS [None]
